FAERS Safety Report 15012528 (Version 5)
Quarter: 2018Q4

REPORT INFORMATION
  Report Type: Spontaneous
  Country: US (occurrence: US)
  Receive Date: 20180614
  Receipt Date: 20181218
  Transmission Date: 20190204
  Serious: Yes (Hospitalization, Disabling, Other)
  Sender: FDA-Public Use
  Company Number: US-OTSUKA-2018_015684

PATIENT
  Age: 23 Year
  Sex: Female

DRUGS (10)
  1. ABILIFY [Suspect]
     Active Substance: ARIPIPRAZOLE
     Dosage: 10 MG, QD
     Route: 065
  2. ABILIFY [Suspect]
     Active Substance: ARIPIPRAZOLE
     Indication: PERSONALITY DISORDER
     Dosage: 5 MG, QD
     Route: 065
     Dates: start: 201010
  3. ABILIFY [Suspect]
     Active Substance: ARIPIPRAZOLE
     Dosage: 30 MG, QD
     Route: 065
     Dates: end: 201409
  4. IBUPROFEN. [Concomitant]
     Active Substance: IBUPROFEN
     Indication: PRODUCT USED FOR UNKNOWN INDICATION
     Dosage: 1 DF, TID
     Route: 048
  5. ALPRAZOLAM. [Concomitant]
     Active Substance: ALPRAZOLAM
     Indication: ANXIETY
     Dosage: 2 DF, TID
     Route: 048
  6. ABILIFY [Suspect]
     Active Substance: ARIPIPRAZOLE
     Dosage: 15 MG, QD
     Route: 065
  7. VENLAFAXINE XR [Concomitant]
     Active Substance: VENLAFAXINE HYDROCHLORIDE
     Indication: DEPRESSION
     Dosage: 1 DF, QD
     Route: 048
  8. ABILIFY [Suspect]
     Active Substance: ARIPIPRAZOLE
     Indication: BIPOLAR DISORDER
     Dosage: UNK
     Route: 065
     Dates: start: 2009
  9. HALOPERIDOL. [Concomitant]
     Active Substance: HALOPERIDOL
     Indication: PRODUCT USED FOR UNKNOWN INDICATION
     Dosage: UNK UNK, QD
     Route: 048
  10. LORAZEPAM. [Concomitant]
     Active Substance: LORAZEPAM
     Indication: PRODUCT USED FOR UNKNOWN INDICATION
     Dosage: 2 MG, QD
     Route: 048

REACTIONS (38)
  - Anhedonia [Unknown]
  - Tonsillitis [Unknown]
  - Borderline personality disorder [Unknown]
  - Throat irritation [Unknown]
  - Nausea [Unknown]
  - Diarrhoea [Unknown]
  - Mental impairment [Unknown]
  - Urobilinogen urine increased [Unknown]
  - Economic problem [Unknown]
  - Suicidal ideation [Unknown]
  - Injury [Unknown]
  - Tenderness [Unknown]
  - High density lipoprotein decreased [Unknown]
  - Intermittent explosive disorder [Unknown]
  - Disability [Unknown]
  - Total cholesterol/HDL ratio increased [Unknown]
  - Joint dislocation [Unknown]
  - Pain [Unknown]
  - Chest pain [Unknown]
  - Somnolence [Unknown]
  - Compulsive shopping [Recovered/Resolved]
  - Oropharyngeal pain [Unknown]
  - Insomnia [Unknown]
  - Eating disorder [Recovered/Resolved]
  - Emotional distress [Unknown]
  - Gambling disorder [Recovered/Resolved]
  - Skin burning sensation [Unknown]
  - Breast pain [Unknown]
  - Vomiting [Unknown]
  - Glycosylated haemoglobin increased [Unknown]
  - Condition aggravated [Recovered/Resolved]
  - Social problem [Unknown]
  - Loss of employment [Unknown]
  - Mental disorder [Unknown]
  - Antisocial personality disorder [Unknown]
  - Pyrexia [Unknown]
  - Syncope [Unknown]
  - Product use in unapproved indication [Unknown]

NARRATIVE: CASE EVENT DATE: 201010
